FAERS Safety Report 5431684-7 (Version None)
Quarter: 2007Q3

REPORT INFORMATION
  Report Type: 
  Country: None (occurrence: None)
  Receive Date: 20070828
  Receipt Date: 20070815
  Transmission Date: 20080115
  Serious: Yes (Other)
  Sender: FDA-Public Use
  Company Number: 310101K07USA

PATIENT
  Age: 5 Year
  Sex: Male

DRUGS (2)
  1. GONAL-F [Suspect]
     Indication: INFERTILITY
  2. OTHER FERTILITY MEDICATIONS (ALL OTHER THERAPEUTIC PRODUCTS) [Concomitant]

REACTIONS (2)
  - AUTISM [None]
  - DRUG EXPOSURE DURING PREGNANCY [None]
